FAERS Safety Report 11039210 (Version 1)
Quarter: 2015Q2

REPORT INFORMATION
  Report Type: Report from Study
  Country: US (occurrence: US)
  Receive Date: 20150416
  Receipt Date: 20150416
  Transmission Date: 20150821
  Serious: Yes (Other)
  Sender: FDA-Public Use
  Company Number: US-GILEAD-2015-0148474

PATIENT
  Age: 57 Year
  Sex: Male

DRUGS (1)
  1. RANOLAZINE [Suspect]
     Active Substance: RANOLAZINE
     Indication: ANGINA PECTORIS
     Dosage: 1000 MG, UNK
     Route: 048

REACTIONS (6)
  - Coronary artery bypass [Unknown]
  - Hypertension [Unknown]
  - Angina pectoris [Unknown]
  - Hypercholesterolaemia [Unknown]
  - Myocardial infarction [Unknown]
  - Factor V deficiency [Unknown]
